FAERS Safety Report 20474507 (Version 7)
Quarter: 2022Q4

REPORT INFORMATION
  Report Type: Other
  Country: JP (occurrence: JP)
  Receive Date: 20220215
  Receipt Date: 20221031
  Transmission Date: 20230112
  Serious: Yes (Hospitalization, Other)
  Sender: FDA-Public Use
  Company Number: JP-CHUGAI-2022003213

PATIENT
  Age: 7 Year
  Sex: Female

DRUGS (3)
  1. RISDIPLAM [Suspect]
     Active Substance: RISDIPLAM
     Indication: Spinal muscular atrophy
     Route: 048
     Dates: start: 20211119, end: 20220111
  2. RISDIPLAM [Suspect]
     Active Substance: RISDIPLAM
     Route: 048
     Dates: start: 20220221
  3. RISDIPLAM [Suspect]
     Active Substance: RISDIPLAM
     Dosage: POWDER FOR SYRUP
     Route: 050

REACTIONS (8)
  - Gastrointestinal haemorrhage [Recovered/Resolved]
  - Gastrointestinal polyp haemorrhage [Recovered/Resolved]
  - Polyp [Unknown]
  - Impetigo [Recovered/Resolved]
  - Viral infection [Unknown]
  - Cellulitis [Recovering/Resolving]
  - General physical health deterioration [Unknown]
  - Rash [Unknown]

NARRATIVE: CASE EVENT DATE: 20220103
